FAERS Safety Report 22050378 (Version 2)
Quarter: 2023Q1

REPORT INFORMATION
  Report Type: Report from Study
  Country: FR (occurrence: FR)
  Receive Date: 20230301
  Receipt Date: 20230310
  Transmission Date: 20230417
  Serious: Yes (Other)
  Sender: FDA-Public Use
  Company Number: FR-002147023-NVSC2023FR046116

PATIENT
  Age: 11 Year
  Sex: Male

DRUGS (1)
  1. OMNITROPE [Suspect]
     Active Substance: SOMATROPIN
     Indication: Product used for unknown indication
     Dosage: 0.9 MG (SIX DAYS OUT OF SEVEN)
     Route: 065
     Dates: start: 20230203

REACTIONS (4)
  - Syncope [Unknown]
  - Injection site pain [Unknown]
  - Needle issue [Unknown]
  - Off label use [Unknown]
